FAERS Safety Report 19958122 (Version 2)
Quarter: 2021Q4

REPORT INFORMATION
  Report Type: Other
  Country: US (occurrence: US)
  Receive Date: 20211015
  Receipt Date: 20211020
  Transmission Date: 20220303
  Serious: Yes (Other)
  Sender: FDA-Public Use
  Company Number: US-ROCHE-2931981

PATIENT
  Sex: Female

DRUGS (4)
  1. XOLAIR [Suspect]
     Active Substance: OMALIZUMAB
     Indication: Urticaria
     Dosage: THIS DOSE FOR 3 YEARS ;ONGOING: NO
     Route: 065
     Dates: start: 201402
  2. XOLAIR [Suspect]
     Active Substance: OMALIZUMAB
     Dosage: THIS DOSE FOR 2 YEARS ;ONGOING: NO
     Route: 065
  3. XOLAIR [Suspect]
     Active Substance: OMALIZUMAB
     Dosage: CURRENT DOSE ;ONGOING: YES
     Route: 065
  4. XOLAIR [Suspect]
     Active Substance: OMALIZUMAB
     Indication: Urticaria
     Route: 058

REACTIONS (4)
  - Anaphylactic reaction [Recovered/Resolved]
  - Gastroenteritis sapovirus [Unknown]
  - Off label use [Unknown]
  - Off label use [Unknown]
